FAERS Safety Report 6531898-9 (Version None)
Quarter: 2010Q1

REPORT INFORMATION
  Report Type: 
  Country: None (occurrence: None)
  Receive Date: 20100108
  Receipt Date: 20091229
  Transmission Date: 20100710
  Serious: Yes (Hospitalization)
  Sender: FDA-Public Use
  Company Number: NL-MEDIMMUNE-MEDI-0010079

PATIENT
  Sex: Female

DRUGS (1)
  1. SYNAGIS [Suspect]
     Route: 030
     Dates: start: 20091007, end: 20091203

REACTIONS (3)
  - FLUID INTAKE REDUCED [None]
  - GASTROENTERITIS VIRAL [None]
  - WEIGHT DECREASED [None]
